FAERS Safety Report 9040412 (Version 1)
Quarter: 2013Q1

REPORT INFORMATION
  Report Type: Report from Study
  Country: US (occurrence: US)
  Receive Date: 20130129
  Receipt Date: 20130129
  Transmission Date: 20140127
  Serious: No
  Sender: FDA-Public Use
  Company Number: US-ABBOTT-12P-163-0892075-00

PATIENT
  Age: 72 Year
  Sex: Female

DRUGS (2)
  1. HUMIRA 40 MG/0.8 ML PEN [Suspect]
     Indication: CROHN^S DISEASE
     Dates: start: 20110726
  2. LIALDA [Concomitant]
     Indication: CROHN^S DISEASE

REACTIONS (3)
  - Malaise [Unknown]
  - Asthenia [Unknown]
  - Fatigue [Unknown]
